FAERS Safety Report 16838490 (Version 1)
Quarter: 2019Q3

REPORT INFORMATION
  Report Type: Spontaneous
  Country: ZA (occurrence: ZA)
  Receive Date: 20190923
  Receipt Date: 20190923
  Transmission Date: 20191005
  Serious: Yes (Hospitalization, Other)
  Sender: FDA-Public Use
  Company Number: ZA-NOVOPROD-685597

PATIENT
  Age: 43 Year
  Sex: Female

DRUGS (2)
  1. PROTAPHANE [Suspect]
     Active Substance: INSULIN HUMAN
     Indication: TYPE 2 DIABETES MELLITUS
     Dosage: 100 IU, QD (70U IN THE MORNING AND 30U AT NIGHT)
     Route: 058
     Dates: start: 2001
  2. ACTRAPID [Suspect]
     Active Substance: INSULIN HUMAN
     Indication: TYPE 2 DIABETES MELLITUS
     Dosage: 2-4 U WITH MEALS (TID)
     Route: 058
     Dates: start: 2001

REACTIONS (2)
  - Injection site abscess [Unknown]
  - Lack of injection site rotation [Unknown]
